FAERS Safety Report 7091861-9 (Version None)
Quarter: 2010Q4

REPORT INFORMATION
  Report Type: 
  Country: None (occurrence: None)
  Receive Date: 20101109
  Receipt Date: 20101005
  Transmission Date: 20110411
  Serious: Yes (Life-Threatening, Hospitalization, Disabling, Other)
  Sender: FDA-Public Use
  Company Number: JP-BRISTOL-MYERS SQUIBB COMPANY-15130875

PATIENT
  Age: 78 Year
  Sex: Male

DRUGS (6)
  1. AVAPRO [Suspect]
     Indication: HYPERTENSION
     Route: 048
     Dates: start: 20100421, end: 20100519
  2. NORVASC [Concomitant]
     Indication: HYPERTENSION
     Route: 048
  3. RASTINON [Concomitant]
     Indication: DIABETES MELLITUS
     Dosage: HOECHST RASTINON
     Route: 048
  4. ACTON [Concomitant]
  5. OLMETEC [Concomitant]
     Indication: HYPERTENSION
     Route: 048
     Dates: end: 20100420
  6. BASEN [Concomitant]
     Indication: DIABETES MELLITUS
     Route: 048

REACTIONS (4)
  - CARDIAC FAILURE CONGESTIVE [None]
  - PLEURAL EFFUSION [None]
  - RENAL IMPAIRMENT [None]
  - URINARY RETENTION [None]
